FAERS Safety Report 5672920-1 (Version None)
Quarter: 2008Q2

REPORT INFORMATION
  Report Type: 
  Country: None (occurrence: None)
  Receive Date: 20080219
  Receipt Date: 20071228
  Transmission Date: 20081010
  Serious: No
  Sender: FDA-Public Use
  Company Number: TPA2007A02569

PATIENT
  Sex: Female

DRUGS (1)
  1. ROZEREM [Suspect]
     Indication: SLEEP DISORDER
     Dosage: 8 MG, QHS, PER ORAL
     Route: 048
     Dates: start: 20070101, end: 20070101

REACTIONS (5)
  - DRUG INEFFECTIVE [None]
  - INITIAL INSOMNIA [None]
  - MALAISE [None]
  - OVERDOSE [None]
  - THERAPEUTIC RESPONSE DELAYED [None]
